FAERS Safety Report 5564329-6 (Version None)
Quarter: 2007Q4

REPORT INFORMATION
  Report Type: 
  Country: None (occurrence: None)
  Receive Date: 20071218
  Receipt Date: 20071207
  Transmission Date: 20080405
  Serious: Yes (Hospitalization, Disabling, Other)
  Sender: FDA-Public Use
  Company Number: PHHO2006AU10602

PATIENT
  Age: 80 Year
  Sex: Female
  Weight: 66 kg

DRUGS (17)
  1. TAMOXIFEN CITRATE [Suspect]
     Indication: BREAST CANCER
     Dosage: DOUBLE BLIND
     Route: 048
     Dates: start: 20021111
  2. ACETAMINOPHEN [Concomitant]
     Indication: PAIN
  3. AZOPT [Concomitant]
     Indication: GLAUCOMA
  4. CALTRATE [Concomitant]
  5. DUPHALAC [Concomitant]
     Indication: PROPHYLAXIS
  6. PULMICORT [Concomitant]
     Indication: ASTHMA
  7. TEGRETON CR [Concomitant]
  8. XALATAN [Concomitant]
     Indication: GLAUCOMA
  9. PANTOPRAZOLE SODIUM [Concomitant]
  10. NU-LAX [Concomitant]
     Indication: PROPHYLAXIS
  11. FOSAMAX [Concomitant]
     Indication: OSTEOPOROSIS
  12. MOVICOL [Concomitant]
     Indication: PROPHYLAXIS
  13. PANTOPRAZOLE SODIUM [Concomitant]
     Indication: PROPHYLAXIS
  14. OSTELIN [Concomitant]
  15. ALENDRONATE SODIUM [Concomitant]
  16. CLARITIN [Concomitant]
  17. TEMAZEPAM [Concomitant]

REACTIONS (13)
  - ARTHRALGIA [None]
  - CONSTIPATION [None]
  - FALL [None]
  - FEMORAL NECK FRACTURE [None]
  - FEMUR FRACTURE [None]
  - FRACTURE TREATMENT [None]
  - HUMERUS FRACTURE [None]
  - INTERNAL FIXATION OF FRACTURE [None]
  - MOBILITY DECREASED [None]
  - PAIN IN EXTREMITY [None]
  - PARAESTHESIA [None]
  - PELVIC FRACTURE [None]
  - RIB FRACTURE [None]
